FAERS Safety Report 19792963 (Version 2)
Quarter: 2021Q3

REPORT INFORMATION
  Report Type: Report from Study
  Country: US (occurrence: US)
  Receive Date: 20210906
  Receipt Date: 20210910
  Transmission Date: 20211014
  Serious: No
  Sender: FDA-Public Use
  Company Number: NVSC2021US201068

PATIENT
  Sex: Female

DRUGS (2)
  1. COSENTYX [Suspect]
     Active Substance: SECUKINUMAB
     Indication: PSORIATIC ARTHROPATHY
     Dosage: 300 MG, QW
     Route: 058
  2. COSENTYX [Suspect]
     Active Substance: SECUKINUMAB
     Indication: PSORIASIS
     Route: 058

REACTIONS (8)
  - Oropharyngeal pain [Unknown]
  - Sinusitis [Unknown]
  - Nasopharyngitis [Unknown]
  - COVID-19 [Unknown]
  - Irritable bowel syndrome [Unknown]
  - Dyspnoea [Unknown]
  - Abdominal pain upper [Unknown]
  - Diarrhoea [Unknown]
